FAERS Safety Report 17232873 (Version 2)
Quarter: 2020Q2

REPORT INFORMATION
  Report Type: Spontaneous
  Country: US (occurrence: US)
  Receive Date: 20200103
  Receipt Date: 20200611
  Transmission Date: 20200713
  Serious: Yes (Hospitalization)
  Sender: FDA-Public Use
  Company Number: US-ELI_LILLY_AND_COMPANY-US201912011998

PATIENT
  Sex: Female

DRUGS (3)
  1. LANTUS [Concomitant]
     Active Substance: INSULIN GLARGINE
     Indication: DIABETES MELLITUS
     Dosage: UNK, EACH EVENING (NIGHT)
  2. HUMALOG [Suspect]
     Active Substance: INSULIN LISPRO
     Indication: DIABETES MELLITUS
     Dosage: UNK UNK, UNKNOWN
     Route: 058
  3. BASAGLAR [Suspect]
     Active Substance: INSULIN GLARGINE
     Indication: PRODUCT USED FOR UNKNOWN INDICATION
     Dosage: 50 U, AT BEDTIME
     Route: 065
     Dates: start: 202001

REACTIONS (8)
  - Injection site discomfort [Recovering/Resolving]
  - Frustration tolerance decreased [Not Recovered/Not Resolved]
  - Stress [Recovering/Resolving]
  - Cerebrovascular accident [Recovering/Resolving]
  - Memory impairment [Recovering/Resolving]
  - Amnesia [Recovering/Resolving]
  - Sciatica [Not Recovered/Not Resolved]
  - Injection site pain [Recovering/Resolving]

NARRATIVE: CASE EVENT DATE: 2019
